FAERS Safety Report 12808153 (Version 6)
Quarter: 2018Q1

REPORT INFORMATION
  Report Type: Report from Study
  Country: None (occurrence: LB)
  Receive Date: 20161004
  Receipt Date: 20180303
  Transmission Date: 20180508
  Serious: Yes (Death, Hospitalization)
  Sender: FDA-Public Use
  Company Number: LB-ABBVIE-16K-093-1740033-00

PATIENT
  Age: 21 Year
  Sex: Female
  Weight: 30 kg

DRUGS (4)
  1. HUMIRA [Suspect]
     Active Substance: ADALIMUMAB
     Indication: CROHN^S DISEASE
     Dosage: LOADING DOSE
     Route: 058
     Dates: start: 2011, end: 2011
  2. HUMIRA [Suspect]
     Active Substance: ADALIMUMAB
     Route: 058
     Dates: start: 2014, end: 2014
  3. HUMIRA [Suspect]
     Active Substance: ADALIMUMAB
     Route: 058
     Dates: start: 2014, end: 201611
  4. HUMIRA [Suspect]
     Active Substance: ADALIMUMAB
     Dosage: LOADING DOSE
     Route: 058
     Dates: start: 201403, end: 201403

REACTIONS (15)
  - Hypotension [Recovered/Resolved]
  - C-reactive protein increased [Unknown]
  - Escherichia infection [Not Recovered/Not Resolved]
  - Anaemia [Fatal]
  - Sepsis [Fatal]
  - Dehydration [Recovered/Resolved]
  - Septic shock [Fatal]
  - Oxygen saturation decreased [Not Recovered/Not Resolved]
  - Abdominal infection [Not Recovered/Not Resolved]
  - Diarrhoea [Fatal]
  - Fistula [Fatal]
  - Renal failure [Fatal]
  - Hypotension [Unknown]
  - Confusional state [Not Recovered/Not Resolved]
  - Abdominal abscess [Not Recovered/Not Resolved]

NARRATIVE: CASE EVENT DATE: 2016
